FAERS Safety Report 19050481 (Version 1)
Quarter: 2021Q1

REPORT INFORMATION
  Report Type: Spontaneous
  Country: GB (occurrence: GB)
  Receive Date: 20210324
  Receipt Date: 20210324
  Transmission Date: 20210420
  Serious: Yes (Death, Other)
  Sender: FDA-Public Use
  Company Number: GB-AUROBINDO-AUR-APL-2021-011381

PATIENT
  Sex: Male

DRUGS (3)
  1. ABACAVIR. [Suspect]
     Active Substance: ABACAVIR
     Indication: PRODUCT USED FOR UNKNOWN INDICATION
     Dosage: 600 MILLIGRAM, ONCE A DAY
     Route: 065
  2. ISENTRESS [Suspect]
     Active Substance: RALTEGRAVIR POTASSIUM
     Indication: PRODUCT USED FOR UNKNOWN INDICATION
     Dosage: 400 MILLIGRAM, TWO TIMES A DAY
     Route: 048
  3. ACYCLOVIR. [Suspect]
     Active Substance: ACYCLOVIR
     Indication: PRODUCT USED FOR UNKNOWN INDICATION
     Dosage: 400 MILLIGRAM, TWO TIMES A DAY
     Route: 065

REACTIONS (1)
  - Death [Fatal]
